FAERS Safety Report 12680554 (Version 2)
Quarter: 2016Q3

REPORT INFORMATION
  Report Type: Spontaneous
  Country: CN (occurrence: CN)
  Receive Date: 20160824
  Receipt Date: 20160825
  Transmission Date: 20161109
  Serious: Yes (Hospitalization, Other)
  Sender: FDA-Public Use
  Company Number: CN-BAYER-2016-159645

PATIENT
  Age: 86 Year
  Sex: Male

DRUGS (1)
  1. BAYASPIRIN [Suspect]
     Active Substance: ASPIRIN
     Indication: CORONARY ARTERY DISEASE
     Dosage: 100 MG, QD
     Route: 048

REACTIONS (4)
  - Melaena [None]
  - Adenocarcinoma [None]
  - Anaemia [None]
  - Upper gastrointestinal haemorrhage [None]

NARRATIVE: CASE EVENT DATE: 20150409
